FAERS Safety Report 9827634 (Version 1)
Quarter: 2014Q1

REPORT INFORMATION
  Report Type: Spontaneous
  Country: US (occurrence: None)
  Receive Date: 20140116
  Receipt Date: 20140116
  Transmission Date: 20141002
  Serious: Yes (Life-Threatening, Disabling)
  Sender: FDA-Public Use
  Company Number: None

PATIENT
  Age: 35 Year
  Sex: Female
  Weight: 56.7 kg

DRUGS (1)
  1. LEVOTHYROXINE [Suspect]
     Indication: THYROID DISORDER
     Dosage: 2 TABLETS  ONCE DAILY
     Dates: start: 20121201, end: 20130501

REACTIONS (3)
  - Chest pain [None]
  - Asthma [None]
  - Product substitution issue [None]
